FAERS Safety Report 9921223 (Version 1)
Quarter: 2014Q1

REPORT INFORMATION
  Report Type: Spontaneous
  Country: US (occurrence: None)
  Receive Date: 20140221
  Receipt Date: 20140221
  Transmission Date: 20141002
  Serious: Yes (Other)
  Sender: FDA-Public Use
  Company Number: None

PATIENT
  Age: 42 Year
  Sex: Female
  Weight: 68.04 kg

DRUGS (1)
  1. XARELTO 20 MG JANSSEN [Suspect]
     Indication: PULMONARY EMBOLISM
     Route: 048
     Dates: start: 20131218

REACTIONS (1)
  - Rash pruritic [None]
